FAERS Safety Report 6058364-1 (Version None)
Quarter: 2009Q1

REPORT INFORMATION
  Report Type: 
  Country: None (occurrence: None)
  Receive Date: 20090127
  Receipt Date: 20090114
  Transmission Date: 20090719
  Serious: Yes (Hospitalization)
  Sender: FDA-Public Use
  Company Number: MPS1-1000166

PATIENT
  Age: 45 Year
  Sex: Male
  Weight: 43 kg

DRUGS (1)
  1. ALDURAZYME [Suspect]
     Indication: MUCOPOLYSACCHARIDOSIS I
     Dosage: 14.5 MG,
     Dates: start: 20081003

REACTIONS (1)
  - CARDIAC FAILURE [None]
